FAERS Safety Report 8176965-1 (Version None)
Quarter: 2012Q1

REPORT INFORMATION
  Report Type: 
  Country: None (occurrence: None)
  Receive Date: 20120301
  Receipt Date: 20120227
  Transmission Date: 20120608
  Serious: Yes (Other)
  Sender: FDA-Public Use
  Company Number: US-PFIZER INC-2012046696

PATIENT
  Sex: Male
  Weight: 94 kg

DRUGS (2)
  1. QUINAPRIL HCL [Suspect]
     Indication: BLOOD PRESSURE ABNORMAL
     Dosage: 40 MG, DAILY
  2. CELEBREX [Suspect]
     Indication: ARTHRITIS
     Dosage: 200 MG, 2X/DAY

REACTIONS (3)
  - HAEMATOCHEZIA [None]
  - CHEST PAIN [None]
  - FLATULENCE [None]
